FAERS Safety Report 5892983-8 (Version None)
Quarter: 2008Q3

REPORT INFORMATION
  Report Type: 
  Country: None (occurrence: None)
  Receive Date: 20080923
  Receipt Date: 20070628
  Transmission Date: 20090109
  Serious: No
  Sender: FDA-Public Use
  Company Number: US-ASTRAZENECA-2007UW15347

PATIENT
  Age: 38 Year
  Sex: Female
  Weight: 54.4 kg

DRUGS (3)
  1. SEROQUEL [Suspect]
     Indication: BIPOLAR I DISORDER
     Route: 048
  2. SEROQUEL [Suspect]
     Indication: MANIA
     Route: 048
  3. LAMICTAL [Concomitant]

REACTIONS (4)
  - ABDOMINAL PAIN [None]
  - MUSCLE DISORDER [None]
  - PRURITUS [None]
  - WEIGHT INCREASED [None]
